FAERS Safety Report 23790130 (Version 1)
Quarter: 2024Q2

REPORT INFORMATION
  Report Type: Spontaneous
  Country: JP (occurrence: JP)
  Receive Date: 20240426
  Receipt Date: 20240426
  Transmission Date: 20240716
  Serious: Yes (Other)
  Sender: FDA-Public Use
  Company Number: JP-Merck Healthcare KGaA-2024021045

PATIENT
  Age: 60 Year
  Sex: Male

DRUGS (4)
  1. ERBITUX [Suspect]
     Active Substance: CETUXIMAB
     Indication: Colon cancer
     Dosage: 500 MG/M2, OTHER
     Route: 041
     Dates: start: 20240327, end: 20240410
  2. ERBITUX [Suspect]
     Active Substance: CETUXIMAB
     Dosage: UNK
     Route: 041
     Dates: start: 20240410
  3. ENCORAFENIB [Concomitant]
     Active Substance: ENCORAFENIB
     Indication: Colon cancer
     Dosage: UNK
     Dates: start: 20240327
  4. BINIMETINIB [Concomitant]
     Active Substance: BINIMETINIB
     Indication: Colon cancer
     Dosage: UNK
     Dates: start: 20240327, end: 20240410

REACTIONS (2)
  - Renal impairment [Unknown]
  - White blood cell count decreased [Unknown]

NARRATIVE: CASE EVENT DATE: 20240410
